FAERS Safety Report 12108313 (Version 1)
Quarter: 2016Q1

REPORT INFORMATION
  Report Type: Spontaneous
  Country: US (occurrence: US)
  Receive Date: 20160224
  Receipt Date: 20160224
  Transmission Date: 20160526
  Serious: No
  Sender: FDA-Public Use
  Company Number: US-009507513-1602USA010763

PATIENT
  Age: 65 Year
  Sex: Female

DRUGS (2)
  1. MERREM [Concomitant]
     Active Substance: MEROPENEM
     Dosage: UNK
     Dates: start: 20160218, end: 20160221
  2. CUBICIN [Suspect]
     Active Substance: DAPTOMYCIN
     Indication: INFECTION
     Dosage: 400 MG, EVERY 24 HOURS
     Route: 042
     Dates: start: 20160218, end: 20160221

REACTIONS (1)
  - Rash [Not Recovered/Not Resolved]

NARRATIVE: CASE EVENT DATE: 20160221
